FAERS Safety Report 6099867-3 (Version None)
Quarter: 2009Q1

REPORT INFORMATION
  Report Type: 
  Country: None (occurrence: None)
  Receive Date: 20090303
  Receipt Date: 20090227
  Transmission Date: 20090719
  Serious: Yes (Life-Threatening, Other)
  Sender: FDA-Public Use
  Company Number: PHEH2008US09202

PATIENT
  Sex: Female
  Weight: 35.828 kg

DRUGS (1)
  1. RECLAST [Suspect]
     Indication: OSTEOPOROSIS
     Dosage: 5 MG
     Dates: start: 20080930

REACTIONS (10)
  - ABASIA [None]
  - APPARENT DEATH [None]
  - ARTHRALGIA [None]
  - CYSTITIS [None]
  - GOUT [None]
  - OEDEMA PERIPHERAL [None]
  - PAIN [None]
  - PAIN IN EXTREMITY [None]
  - POLYARTHRITIS [None]
  - SUICIDAL IDEATION [None]
